FAERS Safety Report 5700961-4 (Version None)
Quarter: 2008Q2

REPORT INFORMATION
  Report Type: 
  Country: None (occurrence: None)
  Receive Date: 20080407
  Receipt Date: 20080330
  Transmission Date: 20081010
  Serious: Yes (Life-Threatening)
  Sender: FDA-Public Use
  Company Number: TCI2008A01560

PATIENT
  Sex: Male

DRUGS (2)
  1. LEUPROLIDE ACETATE [Suspect]
     Indication: PROSTATIC DISORDER
     Dosage: SUBCUTANEOUS
     Route: 058
  2. ALFA1-BLOCKER [Concomitant]

REACTIONS (1)
  - NEPHRITIS INTERSTITIAL [None]
